FAERS Safety Report 9479152 (Version 2)
Quarter: 2013Q3

REPORT INFORMATION
  Report Type: Report from Study
  Country: AR (occurrence: AR)
  Receive Date: 20130827
  Receipt Date: 20130827
  Transmission Date: 20140515
  Serious: Yes (Other)
  Sender: FDA-Public Use
  Company Number: AR-BRISTOL-MYERS SQUIBB COMPANY-15905938

PATIENT
  Age: 66 Year
  Sex: Male

DRUGS (5)
  1. WARFARIN SODIUM [Suspect]
     Indication: EMBOLISM
     Dosage: 6MG/D
     Route: 048
     Dates: start: 20110628
  2. ENOXAPARIN SODIUM [Suspect]
     Indication: EMBOLISM
     Route: 058
     Dates: end: 20110703
  3. PLACEBO [Suspect]
     Indication: EMBOLISM
     Dosage: ENOX: UNK-03JUL11
     Route: 048
     Dates: start: 20110628
  4. CARVEDILOL [Concomitant]
     Dates: start: 20110630
  5. METFORMIN [Concomitant]
     Dates: start: 201104

REACTIONS (1)
  - Deep vein thrombosis [Recovered/Resolved]
